FAERS Safety Report 25389074 (Version 5)
Quarter: 2025Q4

REPORT INFORMATION
  Report Type: Report from Study
  Country: US (occurrence: US)
  Receive Date: 20250603
  Receipt Date: 20251024
  Transmission Date: 20260118
  Serious: Yes (Hospitalization, Disabling, Other)
  Sender: ABBVIE
  Company Number: US-ABBVIE-6302712

PATIENT
  Sex: Female

DRUGS (1)
  1. SKYRIZI [Suspect]
     Active Substance: RISANKIZUMAB-RZAA
     Indication: Colitis ulcerative
     Dosage: START DATE TEXT: A YEAR AND A HALF AGO
     Route: 058
     Dates: start: 2024

REACTIONS (9)
  - Hospitalisation [Unknown]
  - Diarrhoea [Unknown]
  - Disability [Unknown]
  - Autoimmune disorder [Unknown]
  - Auditory disorder [Unknown]
  - Lung disorder [Unknown]
  - Pulmonary hypertension [Unknown]
  - Dizziness postural [Unknown]
  - Dysgraphia [Unknown]
